FAERS Safety Report 7086984-4 (Version None)
Quarter: 2010Q4

REPORT INFORMATION
  Report Type: 
  Country: None (occurrence: None)
  Receive Date: 20101106
  Receipt Date: 20101018
  Transmission Date: 20110411
  Serious: No
  Sender: FDA-Public Use
  Company Number: US-WYE-H18226110

PATIENT
  Sex: Female
  Weight: 63.56 kg

DRUGS (5)
  1. PREMPRO [Suspect]
     Indication: MENOPAUSE
     Dosage: 0.625 MG/2.5 MG DAILY
     Route: 048
     Dates: start: 20100922
  2. PREMPRO [Suspect]
     Indication: SLEEP DISORDER
  3. ASCORBIC ACID [Concomitant]
  4. MULTI-VITAMINS [Concomitant]
  5. PROTONIX [Concomitant]

REACTIONS (1)
  - POSTMENOPAUSAL HAEMORRHAGE [None]
